FAERS Safety Report 15370199 (Version 2)
Quarter: 2018Q3

REPORT INFORMATION
  Report Type: Report from Study
  Country: US (occurrence: US)
  Receive Date: 20180911
  Receipt Date: 20180913
  Transmission Date: 20181010
  Serious: Yes (Death, Life-Threatening, Other)
  Sender: FDA-Public Use
  Company Number: US-PFIZER INC-2018364506

PATIENT
  Age: 3 Year
  Sex: Male

DRUGS (6)
  1. CYCLOPHOSPHAMIDE. [Concomitant]
     Active Substance: CYCLOPHOSPHAMIDE
     Dosage: 50 MG/KG, DOSE FOR 4 DAYS, DAYS ?5 TO ?2
  2. BUSULFAN. [Concomitant]
     Active Substance: BUSULFAN
     Dosage: 0.8 TO 1 MG/ KG/DOSE EVERY 6 HOURS FOR 4 DAYS, DAYS ?9 TO ?6
  3. CAMPATH [Concomitant]
     Active Substance: ALEMTUZUMAB
     Dosage: UNK
  4. CYCLOSPORINE A [Suspect]
     Active Substance: CYCLOSPORINE
     Indication: PROPHYLAXIS AGAINST GRAFT VERSUS HOST DISEASE
     Dosage: UNK
  5. FLUDARABINE [Concomitant]
     Active Substance: FLUDARABINE PHOSPHATE
     Dosage: 30 MG/KG, DOSE FOR 4 DAYS, DAYS ?5 TO ?2
  6. METHOTREXATE SODIUM. [Suspect]
     Active Substance: METHOTREXATE SODIUM
     Indication: PROPHYLAXIS AGAINST GRAFT VERSUS HOST DISEASE
     Dosage: 10 MG/M2, ON DAYS 1, 3, 6, AND 11 AFTER SCT

REACTIONS (1)
  - Pneumonia bacterial [Fatal]
